FAERS Safety Report 14488096 (Version 1)
Quarter: 2018Q1

REPORT INFORMATION
  Report Type: Spontaneous
  Country: DK (occurrence: DK)
  Receive Date: 20180205
  Receipt Date: 20180205
  Transmission Date: 20180509
  Serious: Yes (Other)
  Sender: FDA-Public Use
  Company Number: DK-MYLANLABS-2018M1006854

PATIENT
  Age: 46 Year
  Sex: Female

DRUGS (2)
  1. LIDOCAINE. [Concomitant]
     Active Substance: LIDOCAINE
     Indication: PRODUCT USED FOR UNKNOWN INDICATION
     Dosage: STYRKE: 1%.
     Route: 052
  2. LEDERSPAN [Suspect]
     Active Substance: TRIAMCINOLONE HEXACETONIDE
     Indication: EPICONDYLITIS
     Route: 052

REACTIONS (4)
  - Joint lock [Not Recovered/Not Resolved]
  - Pigmentation disorder [Recovering/Resolving]
  - Injection site necrosis [Unknown]
  - Pain in extremity [Not Recovered/Not Resolved]
